FAERS Safety Report 11750831 (Version 1)
Quarter: 2015Q4

REPORT INFORMATION
  Report Type: Spontaneous
  Country: JP (occurrence: JP)
  Receive Date: 20151118
  Receipt Date: 20151118
  Transmission Date: 20160304
  Serious: Yes (Death)
  Sender: FDA-Public Use
  Company Number: JP-MALLINCKRODT-T201505244

PATIENT
  Age: 62 Year
  Sex: Female
  Weight: 64 kg

DRUGS (17)
  1. DECADRON [Concomitant]
     Active Substance: DEXAMETHASONE
     Indication: ANALGESIC THERAPY
     Dosage: 2 MG
     Route: 048
     Dates: end: 20151020
  2. ALFACALCIDOL [Concomitant]
     Active Substance: ALFACALCIDOL
     Dosage: 2 UG
     Route: 048
     Dates: end: 20151020
  3. SENNOSIDE [Concomitant]
     Active Substance: SENNOSIDES
     Dosage: 24 MG
     Route: 048
     Dates: end: 20151020
  4. METHADONE [Suspect]
     Active Substance: METHADONE HYDROCHLORIDE
     Dosage: 15 MG (45 MG DAILY DOSE)
     Route: 048
     Dates: start: 20151002, end: 20151008
  5. METHADONE [Suspect]
     Active Substance: METHADONE HYDROCHLORIDE
     Dosage: 20 MG (20 MG DAILY DOSE)
     Route: 048
     Dates: start: 20151021, end: 20151023
  6. OXIFAST [Concomitant]
     Active Substance: OXYCODONE
     Indication: ANALGESIC THERAPY
     Dosage: 4.8 MG PRN
     Route: 051
     Dates: start: 20150924
  7. THYRADIN S [Concomitant]
     Active Substance: LEVOTHYROXINE SODIUM
     Dosage: 150 UG
     Route: 048
     Dates: end: 20151020
  8. METHADONE [Suspect]
     Active Substance: METHADONE HYDROCHLORIDE
     Indication: CANCER PAIN
     Dosage: 10 MG (30 MG DAILY DOSE)
     Route: 048
     Dates: start: 20150925, end: 20151001
  9. OXINORM [Concomitant]
     Active Substance: OXYCODONE HYDROCHLORIDE
     Indication: ANALGESIC THERAPY
     Dosage: 20 MG PRN
     Route: 051
     Dates: start: 20151001
  10. DEPAKENE [Concomitant]
     Active Substance: VALPROIC ACID
     Indication: ANALGESIC THERAPY
     Dosage: 400 MG
     Route: 048
     Dates: end: 20151020
  11. METHADONE [Suspect]
     Active Substance: METHADONE HYDROCHLORIDE
     Dosage: 20 MG (60 MG DAILY DOSE)
     Route: 048
     Dates: start: 20151009, end: 20151020
  12. MAGLAX [Concomitant]
     Active Substance: MAGNESIUM OXIDE
     Dosage: 990 MG
     Route: 048
     Dates: end: 20151020
  13. AMLODIPINE [Concomitant]
     Active Substance: AMLODIPINE BESYLATE
     Dosage: 5 MG
     Route: 048
     Dates: end: 20151020
  14. LOXONIN [Concomitant]
     Active Substance: LOXOPROFEN SODIUM
     Indication: ANALGESIC THERAPY
     Dosage: 180 MG
     Route: 048
     Dates: end: 20151020
  15. TEPRENONE [Concomitant]
     Active Substance: TEPRENONE
     Dosage: 150 MG
     Route: 048
     Dates: end: 20151020
  16. LANDSEN [Concomitant]
     Active Substance: CLONAZEPAM
     Indication: ANALGESIC THERAPY
     Dosage: 0.5 MG
     Route: 048
     Dates: end: 20151020
  17. CALCIUM LACTATE [Concomitant]
     Active Substance: CALCIUM LACTATE
     Dosage: 3 G
     Route: 048
     Dates: end: 20151020

REACTIONS (1)
  - Thyroid cancer [Fatal]

NARRATIVE: CASE EVENT DATE: 20151026
